FAERS Safety Report 15171080 (Version 1)
Quarter: 2018Q3

REPORT INFORMATION
  Report Type: Spontaneous
  Country: US (occurrence: US)
  Receive Date: 20180720
  Receipt Date: 20180720
  Transmission Date: 20181010
  Serious: Yes (Other)
  Sender: FDA-Public Use
  Company Number: US-PFIZER INC-2018287930

PATIENT

DRUGS (1)
  1. DIPHENHYDRAMINE HCL [Suspect]
     Active Substance: DIPHENHYDRAMINE HYDROCHLORIDE
     Dosage: 25 MG, EVERY 4 HRS (CHRONIC USE)
     Route: 064

REACTIONS (3)
  - Maternal exposure during pregnancy [Unknown]
  - Neonatal respiratory depression [Unknown]
  - Toxicity to various agents [Unknown]
